FAERS Safety Report 6238697-6 (Version None)
Quarter: 2009Q2

REPORT INFORMATION
  Report Type: 
  Country: None (occurrence: None)
  Receive Date: 20090622
  Receipt Date: 20090611
  Transmission Date: 20091009
  Serious: Yes (Life-Threatening, Other)
  Sender: FDA-Public Use
  Company Number: GB-PFIZER INC-2009225645

PATIENT
  Age: 25 Year

DRUGS (1)
  1. DEPO-PROVERA [Suspect]
     Indication: CONTRACEPTION
     Dosage: 150 MG, SINGLE
     Route: 030
     Dates: start: 20090429

REACTIONS (5)
  - DIZZINESS [None]
  - HYPERSENSITIVITY [None]
  - HYPOTENSION [None]
  - PARAESTHESIA [None]
  - RASH GENERALISED [None]
